FAERS Safety Report 14228297 (Version 2)
Quarter: 2018Q2

REPORT INFORMATION
  Report Type: Report from Study
  Country: US (occurrence: US)
  Receive Date: 20171127
  Receipt Date: 20180412
  Transmission Date: 20180711
  Serious: Yes (Other)
  Sender: FDA-Public Use
  Company Number: PHEH2017US038080

PATIENT
  Age: 70 Year
  Sex: Female

DRUGS (2)
  1. ESCITALOPRAM [Concomitant]
     Active Substance: ESCITALOPRAM OXALATE
     Indication: HOT FLUSH
     Dosage: 10 MG, QD
     Route: 048
     Dates: start: 20171020
  2. GILENYA [Suspect]
     Active Substance: FINGOLIMOD HYDROCHLORIDE
     Indication: PRODUCT USED FOR UNKNOWN INDICATION
     Dosage: 0.5 MG, QD
     Route: 048
     Dates: start: 20150615, end: 20171122

REACTIONS (3)
  - Leukopenia [Unknown]
  - Lymphopenia [Unknown]
  - Secondary progressive multiple sclerosis [Unknown]

NARRATIVE: CASE EVENT DATE: 20160111
